FAERS Safety Report 13894587 (Version 1)
Quarter: 2017Q3

REPORT INFORMATION
  Report Type: Spontaneous
  Country: US (occurrence: US)
  Receive Date: 20170816
  Receipt Date: 20170816
  Transmission Date: 20171127
  Serious: Yes (Disabling)
  Sender: FDA-Public Use
  Company Number: None

PATIENT
  Age: 55 Year
  Sex: Female
  Weight: 81.45 kg

DRUGS (1)
  1. TAMOXIFEN 20 MG [Suspect]
     Active Substance: TAMOXIFEN
     Indication: BREAST CANCER
     Dosage: ?          QUANTITY:1 TABLET(S);?
     Route: 048
     Dates: start: 20150915, end: 20161121

REACTIONS (4)
  - Hepatic fibrosis [None]
  - Aspartate aminotransferase increased [None]
  - Liver injury [None]
  - Alanine aminotransferase increased [None]

NARRATIVE: CASE EVENT DATE: 20151201
